FAERS Safety Report 12078688 (Version 3)
Quarter: 2024Q4

REPORT INFORMATION
  Report Type: Spontaneous
  Country: FR (occurrence: FR)
  Receive Date: 20160216
  Receipt Date: 20241014
  Transmission Date: 20250114
  Serious: Yes (Hospitalization)
  Sender: ACCORD
  Company Number: None

PATIENT
  Age: 16 Year
  Sex: Male
  Weight: 58.3 kg

DRUGS (7)
  1. CISPLATIN [Interacting]
     Active Substance: CISPLATIN
     Indication: Nasopharyngeal cancer
     Route: 042
     Dates: start: 20151209, end: 20151209
  2. FLUOROURACIL [Interacting]
     Active Substance: FLUOROURACIL
     Indication: Nasopharyngeal cancer
     Dosage: INFUSION, 1ST CYCLE
     Route: 042
     Dates: start: 20151210, end: 20160111
  3. ONDANSETRON [Interacting]
     Active Substance: ONDANSETRON
     Indication: Premedication
  4. ALIZAPRIDE HYDROCHLORIDE [Interacting]
     Active Substance: ALIZAPRIDE HYDROCHLORIDE
     Indication: Premedication
  5. SOLU-MEDROL [Interacting]
     Active Substance: METHYLPREDNISOLONE SODIUM SUCCINATE
     Indication: Premedication
  6. EMEND [Interacting]
     Active Substance: APREPITANT
     Indication: Premedication
  7. FLUOROURACIL [Interacting]
     Active Substance: FLUOROURACIL
     Indication: Nasopharyngeal cancer
     Dosage: INFUSION, 2ND CYCLE
     Route: 042
     Dates: start: 20160104, end: 20160111

REACTIONS (9)
  - Hyponatraemia [Recovered/Resolved]
  - Hyperammonaemia [Not Recovered/Not Resolved]
  - Inappropriate antidiuretic hormone secretion [Unknown]
  - Sepsis [Unknown]
  - Hyperammonaemic encephalopathy [Recovered/Resolved]
  - Hypochloraemia [Unknown]
  - Blood urea increased [Unknown]
  - Drug interaction [Unknown]
  - Off label use [Unknown]

NARRATIVE: CASE EVENT DATE: 20151214
